FAERS Safety Report 8522503 (Version 4)
Quarter: 2013Q2

REPORT INFORMATION
  Report Type: Report from Study
  Country: CA (occurrence: CA)
  Receive Date: 20120419
  Receipt Date: 20130510
  Transmission Date: 20140414
  Serious: Yes (Death, Other)
  Sender: FDA-Public Use
  Company Number: PHHY2012CA032145

PATIENT
  Age: 66 Year
  Sex: Female

DRUGS (14)
  1. ACLASTA [Suspect]
     Indication: OSTEOPOROSIS
     Dosage: UNK
     Route: 042
     Dates: start: 20110608
  2. ACLASTA [Suspect]
     Dosage: UNK
     Route: 042
     Dates: start: 20120607
  3. LYRICA [Concomitant]
     Dosage: UNK
  4. MONOCOR [Concomitant]
     Dosage: UNK
  5. STATEX [Concomitant]
     Dosage: UNK
  6. VENTOLIN [Concomitant]
     Dosage: UNK
  7. VIT D [Concomitant]
     Dosage: UNK
  8. SERAX [Concomitant]
     Dosage: UNK
  9. RIVOTRIL [Concomitant]
     Dosage: UNK
  10. CELEBREX [Concomitant]
     Dosage: UNK
  11. LIPITOR [Concomitant]
     Dosage: UNK
  12. ESTRACE [Concomitant]
     Dosage: UNK
  13. ADVAIR [Concomitant]
     Dosage: UNK
  14. LOSEC//OMEPRAZOLE [Concomitant]

REACTIONS (2)
  - Lung neoplasm malignant [Fatal]
  - Pelvic fracture [Unknown]
